FAERS Safety Report 6020728-X (Version None)
Quarter: 2008Q4

REPORT INFORMATION
  Report Type: 
  Country: None (occurrence: None)
  Receive Date: 20081223
  Receipt Date: 20080129
  Transmission Date: 20090506
  Serious: Yes (Other)
  Sender: FDA-Public Use
  Company Number: 2008-BP-01416BP

PATIENT
  Sex: Female

DRUGS (1)
  1. ZANTAC 150 [Suspect]
     Indication: DYSPEPSIA
     Dosage: 150 MG (150 MG, QD), PO
     Route: 048
     Dates: start: 20080128, end: 20080129

REACTIONS (1)
  - PHARYNGEAL OEDEMA [None]
